FAERS Safety Report 7578111-1 (Version None)
Quarter: 2011Q2

REPORT INFORMATION
  Report Type: 
  Country: None (occurrence: None)
  Receive Date: 20110628
  Receipt Date: 20110617
  Transmission Date: 20111010
  Serious: Yes (Hospitalization)
  Sender: FDA-Public Use
  Company Number: BR-US-EMD SERONO, INC.-7066245

PATIENT
  Sex: Female

DRUGS (7)
  1. CRESTOR [Concomitant]
  2. ALPRAZOLAM [Concomitant]
  3. METAMUCIL-2 [Concomitant]
  4. DIOVAN [Concomitant]
  5. REBIF [Suspect]
     Indication: RELAPSING-REMITTING MULTIPLE SCLEROSIS
  6. SOMALGIN [Concomitant]
  7. AMYTRIL [Concomitant]

REACTIONS (1)
  - CHOLELITHIASIS [None]
